FAERS Safety Report 5312404-3 (Version None)
Quarter: 2007Q2

REPORT INFORMATION
  Report Type: 
  Country: None (occurrence: None)
  Receive Date: 20070430
  Receipt Date: 20061009
  Transmission Date: 20071010
  Serious: No
  Sender: FDA-Public Use
  Company Number: 2006UW19599

PATIENT
  Age: 36 Year
  Sex: Female
  Weight: 47.6 kg

DRUGS (5)
  1. NEXIUM [Suspect]
     Route: 048
     Dates: start: 20060501
  2. AMBIEN [Interacting]
  3. NEURONTIN [Concomitant]
  4. ZANAFLEX [Concomitant]
  5. VICODIN [Concomitant]

REACTIONS (1)
  - DRUG INTERACTION [None]
